FAERS Safety Report 17843004 (Version 4)
Quarter: 2025Q3

REPORT INFORMATION
  Report Type: Spontaneous
  Country: EU (occurrence: EU)
  Receive Date: 20200530
  Receipt Date: 20250826
  Transmission Date: 20251021
  Serious: Yes (Hospitalization, Other)
  Sender: AUROBINDO
  Company Number: EU-AZEVEDOSP-2020-00187

PATIENT
  Age: 53 Year
  Sex: Female

DRUGS (6)
  1. AZITHROMYCIN ANHYDROUS [Suspect]
     Active Substance: AZITHROMYCIN ANHYDROUS
     Indication: Respiratory tract infection
     Dosage: 500 MILLIGRAM, ONCE A DAY
     Route: 048
  2. CEFIXIME [Suspect]
     Active Substance: CEFIXIME
     Indication: Respiratory tract infection
     Dosage: 400 MILLIGRAM, ONCE A DAY
     Route: 048
  3. METHIMAZOLE [Suspect]
     Active Substance: METHIMAZOLE
     Indication: Hyperthyroidism
     Dosage: 5 MILLIGRAM, TWO TIMES A DAY
     Route: 065
  4. MEROPENEM [Concomitant]
     Active Substance: MEROPENEM
     Indication: Product used for unknown indication
     Dosage: 1 GRAM, 3 TIMES A DAY
     Route: 065
  5. FLUCONAZOLE [Concomitant]
     Active Substance: FLUCONAZOLE
     Indication: Product used for unknown indication
     Route: 042
  6. GRANULOCYTE COLONY-STIMULATING FACTOR NOS [Concomitant]
     Active Substance: GRANULOCYTE COLONY-STIMULATING FACTOR NOS
     Indication: Product used for unknown indication
     Route: 065

REACTIONS (4)
  - Neutropenia [Recovered/Resolved]
  - Mucocutaneous candidiasis [Recovered/Resolved]
  - Drug ineffective [Unknown]
  - Treatment failure [Unknown]
